FAERS Safety Report 24124207 (Version 3)
Quarter: 2024Q3

REPORT INFORMATION
  Report Type: Report from Study
  Country: US (occurrence: US)
  Receive Date: 20240723
  Receipt Date: 20240919
  Transmission Date: 20241017
  Serious: Yes (Death)
  Sender: SANDOZ
  Company Number: US-SANDOZ-SDZ2024US066919

PATIENT
  Sex: Female

DRUGS (1)
  1. ZARXIO [Suspect]
     Active Substance: FILGRASTIM-SNDZ
     Indication: Agranulocytosis
     Dosage: 480 UG
     Route: 058
     Dates: start: 20240510, end: 20240715

REACTIONS (1)
  - Drug ineffective [Fatal]
